APPROVED DRUG PRODUCT: TRAVOPROST
Active Ingredient: TRAVOPROST
Strength: 0.004%
Dosage Form/Route: SOLUTION/DROPS;OPHTHALMIC
Application: A214687 | Product #001 | TE Code: AT2
Applicant: ALEMBIC PHARMACEUTICALS LTD
Approved: Dec 17, 2025 | RLD: No | RS: No | Type: RX